FAERS Safety Report 6837340-2 (Version None)
Quarter: 2010Q3

REPORT INFORMATION
  Report Type: 
  Country: None (occurrence: None)
  Receive Date: 20100713
  Receipt Date: 20070509
  Transmission Date: 20110219
  Serious: No
  Sender: FDA-Public Use
  Company Number: US-PFIZER INC-2007038403

PATIENT
  Sex: Female
  Weight: 75 kg

DRUGS (3)
  1. CHANTIX [Suspect]
     Indication: SMOKING CESSATION THERAPY
     Dates: start: 20070420, end: 20070508
  2. VENLAFAXINE [Concomitant]
     Indication: DEPRESSION
  3. MAGNESIUM HYDROXIDE TAB [Concomitant]
     Indication: CONSTIPATION

REACTIONS (4)
  - ABDOMINAL DISTENSION [None]
  - CONSTIPATION [None]
  - FLATULENCE [None]
  - NAUSEA [None]
